FAERS Safety Report 9467980 (Version 2)
Quarter: 2013Q4

REPORT INFORMATION
  Report Type: Report from Study
  Country: JP (occurrence: JP)
  Receive Date: 20130821
  Receipt Date: 20131025
  Transmission Date: 20140711
  Serious: Yes (Life-Threatening)
  Sender: FDA-Public Use
  Company Number: JP-UCBSA-095276

PATIENT
  Age: 62 Year
  Sex: Female
  Weight: 42.5 kg

DRUGS (4)
  1. E KEPPRA [Suspect]
     Indication: COMPLEX PARTIAL SEIZURES
     Route: 048
     Dates: start: 20121128
  2. FUROSEMIDE [Suspect]
     Dosage: 20 MG
     Route: 048
  3. FLUITRAN [Suspect]
     Dosage: 2 MG
     Route: 048
  4. LANDSEN [Concomitant]
     Indication: EPILEPSY
     Dosage: DAILY DOSE: 0.5 MG
     Route: 048
     Dates: start: 20121128

REACTIONS (1)
  - Anaemia [Not Recovered/Not Resolved]
